FAERS Safety Report 8339564 (Version 2)
Quarter: 2015Q1

REPORT INFORMATION
  Report Type: Report from Study
  Country: US (occurrence: US)
  Receive Date: 20120117
  Receipt Date: 20150223
  Transmission Date: 20150721
  Serious: Yes (Death, Hospitalization)
  Sender: FDA-Public Use
  Company Number: US-ROCHE-1028182

PATIENT
  Age: 67 Year
  Sex: Female

DRUGS (22)
  1. TAXOL [Concomitant]
     Active Substance: PACLITAXEL
     Route: 042
  2. TOPOTECAN [Concomitant]
     Active Substance: TOPOTECAN\TOPOTECAN HYDROCHLORIDE
     Route: 042
  3. AVASTIN [Suspect]
     Active Substance: BEVACIZUMAB
     Dosage: ON 25/FEB/2010, SHE RECEIEVD IV BEVACIZUMAB SAME DOSE
     Route: 042
     Dates: start: 20100204
  4. ANZEMET [Concomitant]
     Active Substance: DOLASETRON MESYLATE
     Route: 042
  5. ARANESP [Concomitant]
     Active Substance: DARBEPOETIN ALFA
     Route: 058
  6. AVASTIN [Suspect]
     Active Substance: BEVACIZUMAB
     Dosage: ON 06/AUG/2009, SHE RECEIVD IV BEVACIZUMAB 840 MG.  ON 20/AUG/2009, SHE VISITED THE CLINIC AND RECE
     Route: 042
     Dates: start: 20090723
  7. BENADRYL [Concomitant]
     Active Substance: DIPHENHYDRAMINE HYDROCHLORIDE
     Route: 042
  8. AVASTIN [Suspect]
     Active Substance: BEVACIZUMAB
     Dosage: . ON 11/MAR/2010 AND 01/APR/2010, SHE RECEIEVD IV BEVACIZUMAB 722 MG. ON 15/APR/2010 AND 29/APR/2010
     Route: 042
     Dates: start: 20100311
  9. DECADRON [Concomitant]
     Active Substance: DEXAMETHASONE
     Route: 042
  10. MAGNESIUM OXIDE. [Concomitant]
     Active Substance: MAGNESIUM OXIDE
  11. AVASTIN [Suspect]
     Active Substance: BEVACIZUMAB
     Dosage: ON 17/SEP/2009, SHE RECEIVED IV BEVACIZUMAB OF SAME DOSE
     Route: 042
     Dates: start: 20090904
  12. AVASTIN [Suspect]
     Active Substance: BEVACIZUMAB
     Dosage: ON 24/NOV/2009, SHE RECEIVED IV BEVACIZUMAB 795 MG AND IT WAS REPORTED THAT SHE WAS HOSPITALISED WIT
     Route: 042
     Dates: start: 20091124
  13. PHENERGAN [Concomitant]
     Active Substance: PROMETHAZINE HYDROCHLORIDE
  14. AVASTIN [Suspect]
     Active Substance: BEVACIZUMAB
     Dosage: . ON 07/JAN/2010, SHE VISITED THE CLINIC AND REPORTED ABOUT NAUSEA AND RECEIEVED IV BEVACIZUMAB 735
     Route: 042
     Dates: start: 20100107
  15. AVASTIN [Suspect]
     Active Substance: BEVACIZUMAB
     Dosage: ON AND 29/APR/2010 SHE RECEIEVD  IV BEVACIZUAMB 743 MG. ON 10/JUN/2010, SHE VISITED THE CLINIC AND
     Route: 042
     Dates: start: 20100415
  16. AVASTIN [Suspect]
     Active Substance: BEVACIZUMAB
     Dosage: ON 24/JUN/2010, SHE RECEIVED IV BEVACIOZUMAB OF SAME DOSE.
     Route: 042
     Dates: start: 20100610
  17. PEPCID [Concomitant]
     Active Substance: FAMOTIDINE
     Route: 042
  18. ETHYOL [Concomitant]
     Active Substance: AMIFOSTINE
     Route: 042
  19. AVASTIN [Suspect]
     Active Substance: BEVACIZUMAB
     Indication: UTERINE CANCER
     Route: 042
     Dates: start: 20090430
  20. AVASTIN [Suspect]
     Active Substance: BEVACIZUMAB
     Dosage: O20/AUG/2009 RECEIVED SAME DOSE
     Route: 042
     Dates: start: 20090806
  21. AVASTIN [Suspect]
     Active Substance: BEVACIZUMAB
     Dosage: ON  27/MAY/2010 SHE RECEIEVD IV BEVACIZUMAB OF SAME DOSE
     Route: 042
     Dates: start: 20100513
  22. ALOXI [Concomitant]
     Active Substance: PALONOSETRON HYDROCHLORIDE
     Route: 042

REACTIONS (7)
  - Diarrhoea [Unknown]
  - Urinary retention [Unknown]
  - Fatigue [Unknown]
  - Death [Fatal]
  - Small intestinal obstruction [Unknown]
  - Off label use [Unknown]
  - Nausea [Unknown]

NARRATIVE: CASE EVENT DATE: 20110517
